FAERS Safety Report 20470027 (Version 2)
Quarter: 2022Q2

REPORT INFORMATION
  Report Type: Report from Study
  Country: US (occurrence: US)
  Receive Date: 20220214
  Receipt Date: 20220519
  Transmission Date: 20220721
  Serious: Yes (Hospitalization, Other)
  Sender: FDA-Public Use
  Company Number: US-ALNYLAM PHARMACEUTICALS, INC.-ALN-2022-000500

PATIENT

DRUGS (1)
  1. GIVLAARI [Suspect]
     Active Substance: GIVOSIRAN SODIUM
     Indication: Porphyria acute
     Dosage: WEIGHT BASE DOSING MONTHLY
     Route: 058
     Dates: start: 20210429

REACTIONS (4)
  - Seizure [Unknown]
  - Respiratory disorder [Unknown]
  - Pneumonia viral [Unknown]
  - Porphyria [Unknown]

NARRATIVE: CASE EVENT DATE: 20220101
